FAERS Safety Report 21964456 (Version 1)
Quarter: 2023Q1

REPORT INFORMATION
  Report Type: Spontaneous
  Country: US (occurrence: None)
  Receive Date: 20230206
  Receipt Date: 20230206
  Transmission Date: 20230418
  Serious: Yes (Other)
  Sender: FDA-Public Use
  Company Number: None

PATIENT
  Age: 49 Year
  Sex: Female
  Weight: 80.1 kg

DRUGS (1)
  1. DUPIXENT [Suspect]
     Active Substance: DUPILUMAB
     Indication: Eosinophilic oesophagitis
     Route: 058
     Dates: start: 20221104, end: 20221211

REACTIONS (4)
  - Pain in extremity [None]
  - Gait disturbance [None]
  - Abdominal pain upper [None]
  - Injection site pruritus [None]

NARRATIVE: CASE EVENT DATE: 20221211
